FAERS Safety Report 9526863 (Version 1)
Quarter: 2013Q1

REPORT INFORMATION
  Report Type: Spontaneous
  Country: US (occurrence: None)
  Receive Date: 20130311
  Receipt Date: 20130311
  Transmission Date: 20140127
  Serious: Yes (Other)
  Sender: FDA-Public Use
  Company Number: 1211USA011876

PATIENT
  Age: 93 Year
  Sex: Female

DRUGS (5)
  1. ZIOPTAN [Suspect]
     Indication: GLAUCOMA
  2. AVAPRO (IRBESARTAN) [Concomitant]
  3. PLAVIX (CLOPIDOGREL BISULFATE) [Concomitant]
  4. PRAVASTATIN SODIUM (PRAVASTATIN SODIUM) [Concomitant]
  5. AMLODIPINE (AMLODIPINE) [Concomitant]

REACTIONS (5)
  - Hypersensitivity [None]
  - Pruritus [None]
  - Cough [None]
  - Erythema of eyelid [None]
  - Dry eye [None]
